FAERS Safety Report 23169917 (Version 1)
Quarter: 2023Q4

REPORT INFORMATION
  Report Type: Report from Study
  Country: US (occurrence: US)
  Receive Date: 20231110
  Receipt Date: 20231110
  Transmission Date: 20240109
  Serious: No
  Sender: FDA-Public Use
  Company Number: US-002147023-NVSC2023US238726

PATIENT
  Sex: Male

DRUGS (2)
  1. ENTRESTO [Suspect]
     Active Substance: SACUBITRIL\VALSARTAN
     Indication: Product used for unknown indication
     Dosage: UNK, BID
     Route: 048
  2. ENTRESTO [Suspect]
     Active Substance: SACUBITRIL\VALSARTAN
     Dosage: UNK, BID
     Route: 048

REACTIONS (8)
  - Infection [Unknown]
  - Sleep apnoea syndrome [Unknown]
  - Energy increased [Unknown]
  - Upper-airway cough syndrome [Unknown]
  - Nasal septum deviation [Unknown]
  - Rhinorrhoea [Unknown]
  - Hypotension [Unknown]
  - Product dose omission issue [Unknown]
